FAERS Safety Report 8104612-3 (Version None)
Quarter: 2012Q1

REPORT INFORMATION
  Report Type: 
  Country: None (occurrence: None)
  Receive Date: 20120130
  Receipt Date: 20120123
  Transmission Date: 20120608
  Serious: Yes (Hospitalization, Other)
  Sender: FDA-Public Use
  Company Number: PHEH2011US01648

PATIENT
  Sex: Female
  Weight: 137 kg

DRUGS (2)
  1. EXJADE [Suspect]
     Dosage: 1000 MG, DAILY
     Route: 048
     Dates: start: 20070808
  2. EXJADE [Suspect]
     Indication: IRON METABOLISM DISORDER
     Dosage: 1250 MG, DAILY
     Route: 048
     Dates: start: 20070613

REACTIONS (2)
  - ABDOMINAL HERNIA [None]
  - SICKLE CELL ANAEMIA WITH CRISIS [None]
